FAERS Safety Report 6973706-8 (Version None)
Quarter: 2010Q3

REPORT INFORMATION
  Report Type: 
  Country: None (occurrence: None)
  Receive Date: 20100909
  Receipt Date: 20100903
  Transmission Date: 20110219
  Serious: Yes (Hospitalization, Other)
  Sender: FDA-Public Use
  Company Number: US-ROXANE LABORATORIES, INC.-2010-RO-01184RO

PATIENT
  Age: 61 Year
  Sex: Female

DRUGS (9)
  1. MORPHINE [Suspect]
     Indication: BACK PAIN
     Dosage: 1 MG
     Route: 037
  2. MORPHINE [Suspect]
     Indication: PAIN IN EXTREMITY
     Route: 037
  3. FUROSEMIDE [Suspect]
     Indication: OEDEMA PERIPHERAL
     Dosage: 40 MG
  4. FUROSEMIDE [Suspect]
     Route: 042
  5. HYDROMORPHONE HCL [Suspect]
     Indication: BACK PAIN
     Route: 037
  6. HYDROMORPHONE HCL [Suspect]
     Indication: PAIN IN EXTREMITY
     Route: 037
  7. HYDROCHLOROTHIAZIDE [Suspect]
     Indication: OEDEMA PERIPHERAL
     Route: 048
  8. CEFAZOLIN [Suspect]
     Indication: CELLULITIS
     Route: 042
  9. KEFLEX [Suspect]
     Indication: CELLULITIS
     Route: 048

REACTIONS (4)
  - CELLULITIS [None]
  - DRUG INEFFECTIVE [None]
  - OEDEMA PERIPHERAL [None]
  - TREATMENT FAILURE [None]
